FAERS Safety Report 18439995 (Version 1)
Quarter: 2020Q4

REPORT INFORMATION
  Report Type: Spontaneous
  Country: FR (occurrence: FR)
  Receive Date: 20201029
  Receipt Date: 20201029
  Transmission Date: 20210114
  Serious: Yes (Hospitalization)
  Sender: FDA-Public Use
  Company Number: FR-MACLEODS PHARMACEUTICALS US LTD-MAC2020028822

PATIENT

DRUGS (3)
  1. DEXTROPROPOXYPHENE/PARACETAMOL [Concomitant]
     Active Substance: ACETAMINOPHEN\PROPOXYPHENE HYDROCHLORIDE
     Indication: PAIN
     Dosage: UNK UNK, TID
     Route: 065
  2. OLANZAPINE 10 MG [Suspect]
     Active Substance: OLANZAPINE
     Indication: DEPRESSION
     Dosage: 10 MILLIGRAM, QD
     Route: 065
  3. CLOMIPRAMINE [Concomitant]
     Active Substance: CLOMIPRAMINE
     Indication: DEPRESSION
     Dosage: 100 MILLIGRAM, QD
     Route: 065

REACTIONS (3)
  - Atelectasis [Unknown]
  - Eosinophilic pleural effusion [Recovered/Resolved]
  - Pericardial effusion [Recovered/Resolved]
